FAERS Safety Report 4390493-0 (Version None)
Quarter: 2004Q2

REPORT INFORMATION
  Report Type: 
  Country: None (occurrence: None)
  Receive Date: 20040630
  Receipt Date: 20040622
  Transmission Date: 20050107
  Serious: Yes (Other)
  Sender: FDA-Public Use
  Company Number: 2004042032

PATIENT
  Sex: Female

DRUGS (1)
  1. ROLAIDS [Suspect]
     Indication: DYSPEPSIA
     Dosage: UNSPECIFIED AMOUNT PRN, ORAL
     Route: 048
     Dates: start: 19740101

REACTIONS (2)
  - NEPHROLITHIASIS [None]
  - PAIN [None]
